FAERS Safety Report 9451706 (Version 2)
Quarter: 2014Q4

REPORT INFORMATION
  Report Type: Report from Study
  Country: US (occurrence: US)
  Receive Date: 20130812
  Receipt Date: 20141024
  Transmission Date: 20150529
  Serious: Yes (Hospitalization, Other)
  Sender: FDA-Public Use
  Company Number: US-BIOGENIDEC-2013BI072221

PATIENT
  Age: 44 Year
  Sex: Female

DRUGS (1)
  1. TYSABRI [Suspect]
     Active Substance: NATALIZUMAB
     Indication: MULTIPLE SCLEROSIS
     Route: 042
     Dates: start: 20130222

REACTIONS (3)
  - Cardiac perforation [Not Recovered/Not Resolved]
  - Diarrhoea [Unknown]
  - Aortic valve replacement [Unknown]

NARRATIVE: CASE EVENT DATE: 201307
